FAERS Safety Report 21709084 (Version 1)
Quarter: 2022Q4

REPORT INFORMATION
  Report Type: Spontaneous
  Country: US (occurrence: US)
  Receive Date: 20221210
  Receipt Date: 20221210
  Transmission Date: 20230113
  Serious: Yes (Other)
  Sender: FDA-Public Use
  Company Number: US-ABBVIE-4231549

PATIENT
  Sex: Male

DRUGS (1)
  1. VENCLEXTA [Suspect]
     Active Substance: VENETOCLAX
     Indication: Primary amyloidosis
     Dosage: TAKE 4 TABLET BY MOUTH DAILY SHOULD BE SWALLOWED WHOLE WITH A MEAL AND A FULL GLASS OF WATER
     Route: 048

REACTIONS (2)
  - Tumour lysis syndrome [Unknown]
  - Off label use [Unknown]
